FAERS Safety Report 6504757-5 (Version None)
Quarter: 2009Q4

REPORT INFORMATION
  Report Type: 
  Country: None (occurrence: None)
  Receive Date: 20091216
  Receipt Date: 20091204
  Transmission Date: 20100525
  Serious: Yes (Other)
  Sender: FDA-Public Use
  Company Number: 451482

PATIENT
  Sex: Female
  Weight: 60 kg

DRUGS (4)
  1. PAMIDRONATE DISODIUM [Suspect]
     Indication: BONE LESION
     Dosage: 90 MG, 1 MONTH
  2. PAMIDRONATE DISODIUM [Suspect]
     Indication: PAIN
     Dosage: 90 MG, 1 MONTH
  3. (CHEMOTHERAPEUTICS NOS) [Concomitant]
  4. MORPHINE SULFATE [Concomitant]

REACTIONS (1)
  - IMPAIRED HEALING [None]
